FAERS Safety Report 4387960-2 (Version None)
Quarter: 2004Q2

REPORT INFORMATION
  Report Type: 
  Country: None (occurrence: None)
  Receive Date: 20040607
  Receipt Date: 20040128
  Transmission Date: 20050107
  Serious: Yes (Life-Threatening, Hospitalization)
  Sender: FDA-Public Use
  Company Number: 357626

PATIENT
  Age: 14 Year
  Sex: Female

DRUGS (2)
  1. ACCUTANE [Suspect]
     Dosage: 40 MG DAILY ORAL
     Route: 048
     Dates: start: 20021217
  2. ORTHO TRI-CYCLEN [Suspect]
     Indication: CONTRACEPTION
     Dosage: 1 PER DAY ORAL
     Route: 048
     Dates: start: 20021002, end: 20030415

REACTIONS (2)
  - CEREBRAL THROMBOSIS [None]
  - HEADACHE [None]
